FAERS Safety Report 6599911-0 (Version None)
Quarter: 2010Q1

REPORT INFORMATION
  Report Type: 
  Country: None (occurrence: None)
  Receive Date: 20100217
  Receipt Date: 20100128
  Transmission Date: 20100710
  Serious: Yes (Disabling)
  Sender: FDA-Public Use
  Company Number: 09-002017

PATIENT
  Sex: Female
  Weight: 91 kg

DRUGS (3)
  1. TACLONEX SCALP [Suspect]
     Indication: DRUG USE FOR UNKNOWN INDICATION
     Dosage: UNK, TOPICAL
     Route: 061
     Dates: end: 20090801
  2. INDERAL [Concomitant]
  3. OMEPRAZOLE [Concomitant]

REACTIONS (1)
  - MIGRAINE [None]
